FAERS Safety Report 9638869 (Version 2)
Quarter: 2013Q4

REPORT INFORMATION
  Report Type: Spontaneous
  Country: US (occurrence: US)
  Receive Date: 20131022
  Receipt Date: 20131022
  Transmission Date: 20140711
  Serious: No
  Sender: FDA-Public Use
  Company Number: US-BRISTOL-MYERS SQUIBB COMPANY-19132240

PATIENT
  Age: 76 Year
  Sex: Male
  Weight: 79.36 kg

DRUGS (5)
  1. ELIQUIS [Suspect]
  2. METOPROLOL [Concomitant]
  3. LISINOPRIL [Concomitant]
  4. LIPITOR [Concomitant]
  5. PLAVIX [Concomitant]

REACTIONS (1)
  - Dizziness [Unknown]
